FAERS Safety Report 21855130 (Version 1)
Quarter: 2023Q1

REPORT INFORMATION
  Report Type: Spontaneous
  Country: US (occurrence: US)
  Receive Date: 20230112
  Receipt Date: 20230112
  Transmission Date: 20230418
  Serious: Yes (Other)
  Sender: FDA-Public Use
  Company Number: US-PFIZER INC-202300013405

PATIENT
  Age: 63 Year
  Sex: Female
  Weight: 97.506 kg

DRUGS (3)
  1. PAXLOVID [Suspect]
     Active Substance: NIRMATRELVIR\RITONAVIR
     Indication: COVID-19 treatment
     Dosage: UNK [5 DAYS OF THE STANDARD PREPACKAGED DOSE/DOSE: 5 DAYS. 3 PILLS TO EQUAL A TOTAL OF 300MG]
     Dates: start: 20230109
  2. SIMVASTATIN [Suspect]
     Active Substance: SIMVASTATIN
     Dosage: STARTED 10 YEARS AGO
     Dates: start: 2013
  3. LISINOPRIL [Suspect]
     Active Substance: LISINOPRIL
     Indication: Prophylaxis
     Dosage: 10 MG, 1X/DAY [ABOUT 4 TO 6 YEARS AGO]
     Route: 048

REACTIONS (3)
  - Contraindicated product administered [Unknown]
  - Nausea [Not Recovered/Not Resolved]
  - Vomiting [Unknown]

NARRATIVE: CASE EVENT DATE: 20230109
